FAERS Safety Report 5737998-5 (Version None)
Quarter: 2008Q2

REPORT INFORMATION
  Report Type: 
  Country: None (occurrence: None)
  Receive Date: 20080509
  Receipt Date: 20080429
  Transmission Date: 20081010
  Serious: Yes (Other)
  Sender: FDA-Public Use
  Company Number: 6042634

PATIENT
  Age: 58 Year
  Sex: Female

DRUGS (8)
  1. CARDENSIEL            (BISOPROLOL FUMARATE) [Suspect]
     Indication: PALPITATIONS
     Dosage: ORAL
     Route: 048
  2. FLUOROURACIL (SOLUTION FOR INJECTION) (FLUOROURACIL) [Suspect]
     Indication: BREAST CANCER
     Dosage: INTRAVENOUS
     Route: 042
     Dates: start: 20060713, end: 20060824
  3. EPIRUBICIN HCL [Suspect]
     Indication: BREAST CANCER
     Dates: start: 20060713, end: 20060824
  4. TAXOTERE [Suspect]
     Indication: BREAST CANCER
     Dosage: INTRAVENOUS
     Route: 042
     Dates: start: 20060914, end: 20061026
  5. CYCLOPHOSPHAMIDE (SOLUTION FOR INJECTION) (CYCLOPHOSPHAMIDE) [Suspect]
     Indication: BREAST CANCER
     Dosage: INTRAVENOUS
     Route: 042
     Dates: start: 20060713, end: 20060824
  6. HERCEPTIN [Suspect]
     Indication: BREAST CANCER
     Dosage: INTRAVENOUS
     Route: 042
     Dates: start: 20060915, end: 20061026
  7. TRIATEC (10 MG, TABLET) (RAMIPRIL) [Suspect]
     Indication: HYPERTENSION
     Dosage: ORAL
     Route: 048
  8. KARDEGIC (75 MG, POWDER FOR ORAL SOLUTION) (ACETYLSALICYLATE LYSINE) [Suspect]
     Indication: DRUG USE FOR UNKNOWN INDICATION
     Dosage: ORAL
     Route: 048

REACTIONS (1)
  - EJECTION FRACTION DECREASED [None]
